FAERS Safety Report 4625863-6 (Version None)
Quarter: 2005Q2

REPORT INFORMATION
  Report Type: 
  Country: None (occurrence: None)
  Receive Date: 20050404
  Receipt Date: 20050207
  Transmission Date: 20051028
  Serious: Yes (Life-Threatening, Hospitalization, Disabling, Other)
  Sender: FDA-Public Use
  Company Number: 200511288GDDC

PATIENT
  Age: 80 Year
  Sex: Female

DRUGS (12)
  1. FUROSEMIDE [Suspect]
     Indication: PNEUMONIA
     Dosage: DOSE: INTERMITTENTLY
     Dates: start: 20031106, end: 20031111
  2. TEQUIN [Suspect]
     Route: 048
     Dates: start: 20031105, end: 20031112
  3. ALTACE [Concomitant]
     Dates: start: 20031105, end: 20031107
  4. ASPIRIN [Concomitant]
     Dates: start: 20031025
  5. ATENOLOL [Concomitant]
     Dates: start: 20031125
  6. HEPARIN [Concomitant]
     Dosage: DOSE UNIT: UNITS
     Route: 058
     Dates: start: 20031116
  7. NIFEDIPINE [Concomitant]
     Dosage: DOSE: UNK
  8. PLAVIX [Concomitant]
     Dates: start: 20031027
  9. RANITIDINE [Concomitant]
     Dates: start: 20031101
  10. SIMVASTATIN [Concomitant]
     Dates: start: 20031025
  11. SPIRONOLACTONE [Concomitant]
     Dates: start: 20031112
  12. SYNTHROID [Concomitant]
     Dates: start: 20031025

REACTIONS (10)
  - CHEST PAIN [None]
  - DEPRESSED LEVEL OF CONSCIOUSNESS [None]
  - EJECTION FRACTION DECREASED [None]
  - ELECTROCARDIOGRAM QT PROLONGED [None]
  - HYPOKALAEMIA [None]
  - LABORATORY TEST ABNORMAL [None]
  - NAUSEA [None]
  - SYNCOPE [None]
  - VENTRICULAR TACHYCARDIA [None]
  - VOMITING [None]
